FAERS Safety Report 21178062 (Version 1)
Quarter: 2022Q3

REPORT INFORMATION
  Report Type: Spontaneous
  Country: US (occurrence: US)
  Receive Date: 20220805
  Receipt Date: 20220805
  Transmission Date: 20221026
  Serious: No
  Sender: FDA-Public Use
  Company Number: US-drreddys-SPO/USA/22/0152731

PATIENT
  Age: 37 Year
  Sex: Female

DRUGS (2)
  1. ACCUTANE [Suspect]
     Active Substance: ISOTRETINOIN
     Indication: Acne
     Dates: start: 20210801
  2. ACCUTANE [Suspect]
     Active Substance: ISOTRETINOIN
     Dates: start: 202206

REACTIONS (3)
  - Ophthalmic migraine [Unknown]
  - Migraine [Unknown]
  - Rash [Unknown]

NARRATIVE: CASE EVENT DATE: 20220101
